FAERS Safety Report 4173861 (Version 3)
Quarter: 2020Q1

REPORT INFORMATION
  Report Type: Spontaneous
  Country: NL (occurrence: NL)
  Receive Date: 20040713
  Receipt Date: 20200220
  Transmission Date: 20200409
  Serious: Yes (Other)
  Sender: FDA-Public Use
  Company Number: NL-JNJFOC-20040700166

PATIENT
  Age: 43 Year
  Sex: Female

DRUGS (3)
  1. INFLIXIMAB, RECOMBINANT [Suspect]
     Active Substance: INFLIXIMAB
     Indication: RHEUMATOID ARTHRITIS
     Route: 042
  2. AZATHIOPRINE. [Concomitant]
     Active Substance: AZATHIOPRINE
     Indication: RHEUMATOID ARTHRITIS
  3. PREDNISONE. [Concomitant]
     Active Substance: PREDNISONE
     Indication: RHEUMATOID ARTHRITIS

REACTIONS (12)
  - Arthritis [Unknown]
  - Thrombocytosis [Unknown]
  - Blood lactate dehydrogenase increased [Unknown]
  - Diarrhoea [Unknown]
  - Pneumonia legionella [Recovered/Resolved]
  - Blood pressure systolic increased [Unknown]
  - Heart rate increased [Unknown]
  - White blood cell count increased [Unknown]
  - Red blood cell sedimentation rate increased [Unknown]
  - Respiratory rate increased [Unknown]
  - Hyperhidrosis [Unknown]
  - C-reactive protein increased [Unknown]
